FAERS Safety Report 16389972 (Version 1)
Quarter: 2019Q2

REPORT INFORMATION
  Report Type: Spontaneous
  Country: US (occurrence: US)
  Receive Date: 20190604
  Receipt Date: 20190604
  Transmission Date: 20190711
  Serious: Yes (Life-Threatening, Hospitalization, Other)
  Sender: FDA-Public Use
  Company Number: US-BAUSCH-BL-2019-016020

PATIENT
  Age: 69 Year
  Sex: Male

DRUGS (1)
  1. MESALAZINE [Suspect]
     Active Substance: MESALAMINE
     Indication: COLITIS ULCERATIVE
     Route: 065

REACTIONS (4)
  - Toxicity to various agents [Unknown]
  - Acute respiratory failure [Unknown]
  - Acute kidney injury [Recovered/Resolved]
  - Metabolic acidosis [Unknown]
